FAERS Safety Report 8852341 (Version 1)
Quarter: 2012Q4

REPORT INFORMATION
  Report Type: 
  Country: US (occurrence: US)
  Receive Date: 20121022
  Receipt Date: 20121022
  Transmission Date: 20130627
  Serious: Yes (Life-Threatening)
  Sender: FDA-Public Use
  Company Number: US-ASTRAZENECA-2012SE79372

PATIENT
  Age: 61 Year
  Sex: Female
  Weight: 55 kg

DRUGS (2)
  1. PROPOFOL [Suspect]
     Indication: SEDATION
     Route: 040
  2. FENTANYL [Suspect]
     Indication: SEDATION
     Route: 040

REACTIONS (2)
  - Aspiration [Unknown]
  - Regurgitation [Unknown]
